FAERS Safety Report 4470452-X (Version None)
Quarter: 2004Q4

REPORT INFORMATION
  Report Type: 
  Country: None (occurrence: None)
  Receive Date: 20041005
  Receipt Date: 20040920
  Transmission Date: 20050328
  Serious: Yes (Hospitalization)
  Sender: FDA-Public Use
  Company Number: 2004-BP-08447BP

PATIENT
  Sex: Male

DRUGS (2)
  1. FLOMAX [Suspect]
     Dosage: 0.4 MG(0.4 MG, 1 QD), PO
     Route: 048
     Dates: start: 20000101
  2. PREVACID [Concomitant]

REACTIONS (3)
  - DYSPHAGIA [None]
  - DYSURIA [None]
  - LUNG NEOPLASM MALIGNANT [None]
